FAERS Safety Report 22209045 (Version 1)
Quarter: 2023Q2

REPORT INFORMATION
  Report Type: Other
  Country: US (occurrence: US)
  Receive Date: 20230413
  Receipt Date: 20230413
  Transmission Date: 20230721
  Serious: No
  Sender: FDA-Public Use
  Company Number: US-TRAVERE-2022TVT00557

PATIENT
  Age: 5 Year
  Sex: Male

DRUGS (15)
  1. CHOLIC ACID [Suspect]
     Active Substance: CHOLIC ACID
     Indication: Bile acid synthesis disorder
     Route: 048
     Dates: start: 20170407
  2. CHILDRENS TYLENOL [Concomitant]
     Active Substance: ACETAMINOPHEN
  3. PANTOPRAZOLE SODIUM [Concomitant]
     Active Substance: PANTOPRAZOLE SODIUM
  4. PROPRANOLOL HYDROCHLORIDE [Concomitant]
     Active Substance: PROPRANOLOL HYDROCHLORIDE
  5. OXYBUTYNIN CHLORIDE [Concomitant]
     Active Substance: OXYBUTYNIN CHLORIDE
  6. ISRADIPINE [Concomitant]
     Active Substance: ISRADIPINE
  7. BACTRIM DS [Concomitant]
     Active Substance: SULFAMETHOXAZOLE\TRIMETHOPRIM
  8. Benadryl Allergy Childrens [Concomitant]
  9. HYDROCORTISONE [Concomitant]
     Active Substance: HYDROCORTISONE
  10. MELATONIN [Concomitant]
     Active Substance: MELATONIN
  11. GABAPENTIN [Concomitant]
     Active Substance: GABAPENTIN
  12. NITROFURANTOIN MACROCRYSTALS [Concomitant]
     Active Substance: NITROFURANTOIN
  13. AUGMENTIN [Concomitant]
     Active Substance: AMOXICILLIN\CLAVULANATE POTASSIUM
  14. PROBIOTICS NOS [Concomitant]
     Active Substance: PROBIOTICS NOS
  15. LEVOTHYROXINE SODIUM [Concomitant]
     Active Substance: LEVOTHYROXINE SODIUM

REACTIONS (2)
  - Respiratory syncytial virus infection [Recovered/Resolved]
  - Product dose omission issue [Unknown]
